FAERS Safety Report 4537694-6 (Version None)
Quarter: 2004Q4

REPORT INFORMATION
  Report Type: 
  Country: None (occurrence: None)
  Receive Date: 20041216
  Receipt Date: 20040325
  Transmission Date: 20050328
  Serious: Yes (Death)
  Sender: FDA-Public Use
  Company Number: HQWYE139826MAR04

PATIENT
  Age: 39 Year
  Sex: Female

DRUGS (7)
  1. EFFEXOR XR [Suspect]
     Indication: GENERALISED ANXIETY DISORDER
     Dosage: SEE IMAGE
     Route: 048
     Dates: start: 20040126, end: 20040310
  2. EFFEXOR XR [Suspect]
     Indication: MAJOR DEPRESSION
     Dosage: SEE IMAGE
     Route: 048
     Dates: start: 20040126, end: 20040310
  3. EFFEXOR XR [Suspect]
     Indication: GENERALISED ANXIETY DISORDER
     Dosage: SEE IMAGE
     Route: 048
     Dates: start: 20040311, end: 20040317
  4. EFFEXOR XR [Suspect]
     Indication: MAJOR DEPRESSION
     Dosage: SEE IMAGE
     Route: 048
     Dates: start: 20040311, end: 20040317
  5. ALCOHOL (ETHANOL) [Suspect]
     Dosage: 4 GLASSES OF WINE, ORAL
     Route: 048
     Dates: start: 20040317, end: 20040317
  6. SYNTHROID [Concomitant]
  7. UNSPECIFIED CONTRACEPTIVE (UNSPECIFIED CONTRACEPTIVE) [Concomitant]

REACTIONS (7)
  - ANXIETY [None]
  - APATHY [None]
  - COMPLETED SUICIDE [None]
  - DEPRESSED MOOD [None]
  - FATIGUE [None]
  - FEELING ABNORMAL [None]
  - INSOMNIA [None]
